FAERS Safety Report 4637809-5 (Version None)
Quarter: 2005Q2

REPORT INFORMATION
  Report Type: 
  Country: None (occurrence: None)
  Receive Date: 20050328
  Receipt Date: 20050208
  Transmission Date: 20051028
  Serious: No
  Sender: FDA-Public Use
  Company Number: USA050290200

PATIENT
  Age: 10 Year
  Sex: Male

DRUGS (2)
  1. STRATTERA [Suspect]
     Indication: ATTENTION DEFICIT/HYPERACTIVITY DISORDER
     Dates: start: 20040201
  2. MULTIVITAMINS NOS (MULTIVITAMINS NOS) [Concomitant]

REACTIONS (4)
  - BLEPHAROSPASM [None]
  - EYE ROLLING [None]
  - MOOD SWINGS [None]
  - SOCIAL AVOIDANT BEHAVIOUR [None]
